FAERS Safety Report 10064539 (Version 2)
Quarter: 2014Q2

REPORT INFORMATION
  Report Type: Spontaneous
  Country: IT (occurrence: None)
  Receive Date: 20140404
  Receipt Date: 20140421
  Transmission Date: 20141212
  Serious: Yes (Other)
  Sender: FDA-Public Use
  Company Number: AUR-APL-2014-04126

PATIENT
  Age: 40 Year
  Sex: Female

DRUGS (2)
  1. AMOXICILLIN [Suspect]
     Indication: TOOTH INFECTION
     Dosage: 1 GM, 1 D
     Route: 048
     Dates: start: 20140313, end: 20140313
  2. NIMESULIDE [Suspect]
     Indication: PULPITIS DENTAL
     Dosage: 100 MG, 1 D
     Route: 048
     Dates: start: 20140313, end: 20140313

REACTIONS (1)
  - Lip oedema [None]
